FAERS Safety Report 23027262 (Version 6)
Quarter: 2023Q4

REPORT INFORMATION
  Report Type: Report from Study
  Country: US (occurrence: US)
  Receive Date: 20231004
  Receipt Date: 20231227
  Transmission Date: 20240109
  Serious: Yes (Hospitalization)
  Sender: FDA-Public Use
  Company Number: US-UCBSA-2023048018

PATIENT
  Sex: Female
  Weight: 103 kg

DRUGS (4)
  1. FINTEPLA [Suspect]
     Active Substance: FENFLURAMINE
     Indication: Lennox-Gastaut syndrome
     Dosage: 5.8 MILLILITER, 2X/DAY (BID)
     Dates: start: 20230907
  2. FINTEPLA [Suspect]
     Active Substance: FENFLURAMINE
     Dosage: 5.8 MILLILITER, 2X/DAY (BID)
     Dates: start: 20230908
  3. FINTEPLA [Suspect]
     Active Substance: FENFLURAMINE
     Dosage: 4 ML IN THE MORNING AND 5.08 AT NIGHT, 2X/DAY (BID)
     Dates: start: 20231129
  4. FINTEPLA [Suspect]
     Active Substance: FENFLURAMINE
     Dosage: 5.8 MILLILITER, 2X/DAY (BID)
     Dates: start: 2023

REACTIONS (14)
  - Fall [Unknown]
  - Hypotension [Unknown]
  - Dehydration [Recovered/Resolved]
  - Vomiting [Recovered/Resolved]
  - Impaired gastric emptying [Recovered/Resolved]
  - Decreased appetite [Unknown]
  - Fluid intake reduced [Not Recovered/Not Resolved]
  - Asthenia [Not Recovered/Not Resolved]
  - Weight decreased [Not Recovered/Not Resolved]
  - Hyperhidrosis [Recovered/Resolved]
  - Dyspnoea [Recovering/Resolving]
  - Arthropathy [Recovered/Resolved]
  - Confusional state [Unknown]
  - Product use issue [Unknown]

NARRATIVE: CASE EVENT DATE: 20230101
